FAERS Safety Report 6297238-8 (Version None)
Quarter: 2009Q3

REPORT INFORMATION
  Report Type: 
  Country: None (occurrence: None)
  Receive Date: 20090805
  Receipt Date: 20090727
  Transmission Date: 20100115
  Serious: Yes (Life-Threatening, Hospitalization)
  Sender: FDA-Public Use
  Company Number: NSADSS2002020088

PATIENT
  Age: 71 Year
  Sex: Female

DRUGS (8)
  1. REMICADE [Suspect]
     Route: 041
  2. REMICADE [Suspect]
     Indication: RHEUMATOID ARTHRITIS
     Route: 041
  3. METHOTREXATE [Concomitant]
  4. ACFOL [Concomitant]
  5. NSAID [Concomitant]
  6. CORTICOSTEROIDS NOS [Concomitant]
  7. OMEPRAZOLE [Concomitant]
  8. CALCIUM WITH VITAMIN D [Concomitant]

REACTIONS (1)
  - DISSEMINATED TUBERCULOSIS [None]
